FAERS Safety Report 24625108 (Version 5)
Quarter: 2025Q2

REPORT INFORMATION
  Report Type: Report from Study
  Country: CA (occurrence: CA)
  Receive Date: 20241115
  Receipt Date: 20250507
  Transmission Date: 20250716
  Serious: Yes (Other)
  Sender: LUNDBECK
  Company Number: CA-LUNDBECK-DKLU4006217

PATIENT
  Age: 41 Year
  Sex: Female
  Weight: 61 kg

DRUGS (8)
  1. VYEPTI [Suspect]
     Active Substance: EPTINEZUMAB-JJMR
     Indication: Migraine
     Dosage: 100 MILLIGRAM
     Route: 041
     Dates: start: 20241029
  2. VYEPTI [Suspect]
     Active Substance: EPTINEZUMAB-JJMR
     Dosage: 300 MILLIGRAM
     Route: 041
  3. NORLUTATE [Concomitant]
     Active Substance: NORETHINDRONE ACETATE
     Indication: Product used for unknown indication
     Dosage: 5 MG
     Route: 048
  4. INDOMETHACIN SODIUM [Concomitant]
     Active Substance: INDOMETHACIN SODIUM
     Indication: Product used for unknown indication
     Route: 048
  5. ZOMIG [Concomitant]
     Active Substance: ZOLMITRIPTAN
     Indication: Product used for unknown indication
     Route: 045
  6. PROBIOTIC 10 BILLION DAILY MAINTENANCE [Concomitant]
     Indication: Product used for unknown indication
     Dosage: 1 DOSAGE FORM
  7. BIOTIN [Concomitant]
     Active Substance: BIOTIN
     Indication: Hair disorder
     Dosage: 1000 MG
     Route: 048
  8. CHOLECALCIFEROL [Concomitant]
     Active Substance: CHOLECALCIFEROL
     Indication: Product used for unknown indication

REACTIONS (12)
  - Blindness [Unknown]
  - Nausea [Recovered/Resolved]
  - Headache [Unknown]
  - Pain in extremity [Unknown]
  - Gait disturbance [Unknown]
  - Migraine [Unknown]
  - Drug ineffective [Not Recovered/Not Resolved]
  - Tinnitus [Unknown]
  - Rhinorrhoea [Unknown]
  - Influenza like illness [Unknown]
  - Arthralgia [Unknown]
  - Sinusitis [Recovered/Resolved]

NARRATIVE: CASE EVENT DATE: 20241029
